FAERS Safety Report 5740892-7 (Version None)
Quarter: 2008Q2

REPORT INFORMATION
  Report Type: 
  Country: None (occurrence: None)
  Receive Date: 20080516
  Receipt Date: 20080421
  Transmission Date: 20081010
  Serious: No
  Sender: FDA-Public Use
  Company Number: US-BOEHRINGER INGELHEIM GMBH, GERMANY-2008-BP-04178BP

PATIENT
  Age: 73 Year
  Sex: Female

DRUGS (9)
  1. SPIRIVA [Suspect]
     Indication: CHRONIC OBSTRUCTIVE PULMONARY DISEASE
     Route: 055
     Dates: start: 20060101
  2. ATENOLOL [Concomitant]
     Indication: HYPERTENSION
     Route: 048
  3. DYNACIRC [Concomitant]
     Indication: HYPERTENSION
     Route: 048
  4. BENICAR HCT [Concomitant]
     Indication: HYPERTENSION
     Route: 048
  5. CATAPRES [Concomitant]
     Indication: HYPERTENSION
  6. NITROGLYCERIN [Concomitant]
  7. ASPIRIN [Concomitant]
     Route: 048
  8. IRON [Concomitant]
     Route: 048
  9. OXYGEN [Concomitant]
     Route: 055

REACTIONS (7)
  - DIZZINESS [None]
  - DYSGEUSIA [None]
  - FLUSHING [None]
  - HEADACHE [None]
  - HYPOAESTHESIA ORAL [None]
  - NAUSEA [None]
  - VISUAL DISTURBANCE [None]
